FAERS Safety Report 14228611 (Version 1)
Quarter: 2017Q4

REPORT INFORMATION
  Report Type: Spontaneous
  Country: US (occurrence: None)
  Receive Date: 20171124
  Receipt Date: 20171124
  Transmission Date: 20180321
  Serious: No
  Sender: FDA-Public Use
  Company Number: None

PATIENT
  Age: 38 Year
  Sex: Female

DRUGS (1)
  1. ENOXAPARIN SYR 150/1ML [Suspect]
     Active Substance: ENOXAPARIN SODIUM
     Route: 058

REACTIONS (5)
  - Dyspnoea [None]
  - Dizziness [None]
  - Hypersensitivity [None]
  - Oral pruritus [None]
  - Sinus pain [None]

NARRATIVE: CASE EVENT DATE: 20171104
